FAERS Safety Report 14431653 (Version 1)
Quarter: 2018Q1

REPORT INFORMATION
  Report Type: Report from Study
  Country: US (occurrence: US)
  Receive Date: 20180124
  Receipt Date: 20180124
  Transmission Date: 20180509
  Serious: Yes (Death, Hospitalization, Other)
  Sender: FDA-Public Use
  Company Number: US-BAYER-2017-216016

PATIENT
  Age: 83 Year
  Sex: Female
  Weight: 64.31 kg

DRUGS (10)
  1. FLOLAN [Concomitant]
     Active Substance: EPOPROSTENOL SODIUM
     Dosage: UNK
  2. AMLODIPINE [Concomitant]
     Active Substance: AMLODIPINE BESYLATE
     Dosage: UNK
  3. ADEMPAS [Suspect]
     Active Substance: RIOCIGUAT
     Indication: PULMONARY ARTERIAL HYPERTENSION
     Dosage: UNK
     Dates: start: 20160621
  4. ADEMPAS [Suspect]
     Active Substance: RIOCIGUAT
     Indication: PULMONARY ARTERIAL HYPERTENSION
     Dosage: 2.5 MG, TID
     Route: 048
  5. ADEMPAS [Suspect]
     Active Substance: RIOCIGUAT
     Indication: PULMONARY ARTERIAL HYPERTENSION
     Dosage: 2.5 MG, TID
     Route: 048
  6. WARFARIN [Concomitant]
     Active Substance: WARFARIN
     Dosage: UNK
  7. LETAIRIS [Concomitant]
     Active Substance: AMBRISENTAN
     Dosage: UNK
  8. ADEMPAS [Suspect]
     Active Substance: RIOCIGUAT
     Indication: PULMONARY ARTERIAL HYPERTENSION
     Dosage: 2.5 MG, TID
     Route: 048
  9. SILDENAFIL CITRATE. [Concomitant]
     Active Substance: SILDENAFIL CITRATE
     Dosage: UNK
  10. PIRFENIDONE. [Concomitant]
     Active Substance: PIRFENIDONE
     Dosage: UNK

REACTIONS (14)
  - Atrial flutter [Recovered/Resolved]
  - Urinary tract infection [None]
  - Nasopharyngitis [Unknown]
  - Clostridium difficile infection [None]
  - Nausea [Not Recovered/Not Resolved]
  - Acute kidney injury [Unknown]
  - Diarrhoea [None]
  - Nausea [None]
  - Localised infection [None]
  - Hypotension [None]
  - Syncope [Unknown]
  - Death [Fatal]
  - Atrial fibrillation [Unknown]
  - Pericardial effusion [None]

NARRATIVE: CASE EVENT DATE: 201712
